FAERS Safety Report 5382313-2 (Version None)
Quarter: 2007Q3

REPORT INFORMATION
  Report Type: 
  Country: None (occurrence: None)
  Receive Date: 20070709
  Receipt Date: 20070704
  Transmission Date: 20080115
  Serious: Yes (Hospitalization)
  Sender: FDA-Public Use
  Company Number: ES-ROXANE LABORATORIES, INC-2007-BP-16696RO

PATIENT
  Age: 29 Year
  Sex: Male

DRUGS (6)
  1. LITHIUM CARBONATE [Suspect]
     Indication: BIPOLAR DISORDER
     Dosage: 1200 MG DAILY
     Route: 048
  2. PREDNISONE [Suspect]
     Indication: ADDISON'S DISEASE
  3. FLUDROCORTISONE ACETATE [Suspect]
     Indication: ADDISON'S DISEASE
     Dosage: 0.15 MG/DAY
  4. HYDROCORTISONE [Suspect]
     Indication: ADDISON'S DISEASE
     Dosage: 40 MG DAILY
  5. PERICYAZINE [Concomitant]
  6. LORAZEPAM [Concomitant]

REACTIONS (11)
  - ABDOMINAL DISCOMFORT [None]
  - ADRENOCORTICAL INSUFFICIENCY ACUTE [None]
  - ANOREXIA [None]
  - ASTHENIA [None]
  - DIZZINESS [None]
  - DRUG INTERACTION [None]
  - GRAND MAL CONVULSION [None]
  - HYPOMANIA [None]
  - HYPONATRAEMIA [None]
  - STUPOR [None]
  - VOMITING [None]
